FAERS Safety Report 7428966-6 (Version None)
Quarter: 2011Q2

REPORT INFORMATION
  Report Type: 
  Country: None (occurrence: None)
  Receive Date: 20110421
  Receipt Date: 20110408
  Transmission Date: 20111010
  Serious: Yes (Death, Hospitalization)
  Sender: FDA-Public Use
  Company Number: GB-MYLANLABS-2011S1007401

PATIENT
  Age: 18 Year
  Sex: Male

DRUGS (9)
  1. ANALGESICS [Concomitant]
     Indication: PRODUCT USED FOR UNKNOWN INDICATION
  2. CISPLATIN [Suspect]
     Indication: LUNG NEOPLASM MALIGNANT
  3. DOCETAXEL [Suspect]
     Indication: LUNG NEOPLASM MALIGNANT
  4. PACLITAXEL [Suspect]
     Indication: LUNG NEOPLASM MALIGNANT
  5. ANTIBIOTICS [Concomitant]
     Indication: PNEUMONIA
  6. ERLOTINIB [Suspect]
     Indication: LUNG NEOPLASM MALIGNANT
  7. VINORELBINE TARTRATE [Suspect]
     Indication: LUNG NEOPLASM MALIGNANT
  8. CARBOPLATIN [Suspect]
     Indication: LUNG NEOPLASM MALIGNANT
  9. GEMCITABINE HYDROCHLORIDE [Suspect]
     Indication: LUNG NEOPLASM MALIGNANT

REACTIONS (3)
  - DISEASE PROGRESSION [None]
  - HYPERSENSITIVITY [None]
  - NEOPLASM MALIGNANT [None]
